FAERS Safety Report 16758464 (Version 2)
Quarter: 2019Q4

REPORT INFORMATION
  Report Type: Spontaneous
  Country: ES (occurrence: ES)
  Receive Date: 20190830
  Receipt Date: 20191023
  Transmission Date: 20200122
  Serious: Yes (Hospitalization, Other)
  Sender: FDA-Public Use
  Company Number: ES-SA-2019SA243082

PATIENT
  Age: 69 Year
  Sex: Male

DRUGS (2)
  1. OMEPRAZOLE. [Suspect]
     Active Substance: OMEPRAZOLE
     Indication: PRODUCT USED FOR UNKNOWN INDICATION
     Dosage: 20 MG, QD
  2. TAMSULOSIN HYDROCHLORIDE. [Suspect]
     Active Substance: TAMSULOSIN HYDROCHLORIDE
     Indication: PRODUCT USED FOR UNKNOWN INDICATION
     Dosage: 0.4 MG, QD

REACTIONS (12)
  - Malaise [Unknown]
  - Asthenia [Unknown]
  - Proteinuria [Unknown]
  - Haemoptysis [Unknown]
  - Melaena [Unknown]
  - Blood creatinine increased [Unknown]
  - Metabolic acidosis [Unknown]
  - Goodpasture^s syndrome [Unknown]
  - Haematuria [Unknown]
  - Acute kidney injury [Unknown]
  - Cough [Unknown]
  - General physical health deterioration [Unknown]
